FAERS Safety Report 21075014 (Version 1)
Quarter: 2022Q3

REPORT INFORMATION
  Report Type: Spontaneous
  Country: CA (occurrence: CA)
  Receive Date: 20220713
  Receipt Date: 20220713
  Transmission Date: 20221027
  Serious: Yes (Other)
  Sender: FDA-Public Use
  Company Number: CA-TEVA-2022-CA-2053033

PATIENT
  Age: 55 Year
  Sex: Female

DRUGS (1)
  1. DULOXETINE HYDROCHLORIDE [Suspect]
     Active Substance: DULOXETINE HYDROCHLORIDE
     Indication: Product used for unknown indication
     Dosage: 30 MILLIGRAM DAILY;
     Route: 048

REACTIONS (6)
  - Bradycardia [Unknown]
  - Concussion [Unknown]
  - Dizziness [Unknown]
  - Head injury [Unknown]
  - Hypotension [Unknown]
  - Syncope [Unknown]
